FAERS Safety Report 5091349-0 (Version None)
Quarter: 2006Q3

REPORT INFORMATION
  Report Type: 
  Country: None (occurrence: None)
  Receive Date: 20060824
  Receipt Date: 20060712
  Transmission Date: 20061208
  Serious: Yes (Death, Other)
  Sender: FDA-Public Use
  Company Number: CLOF-10278

PATIENT
  Age: 71 Year
  Sex: Male

DRUGS (24)
  1. CLOFARABINE [Suspect]
     Indication: ACUTE MYELOID LEUKAEMIA
     Dosage: 49.3 MG QD X 5; IV
     Route: 042
     Dates: start: 20060708, end: 20060711
  2. CYTARABINE [Suspect]
     Indication: ACUTE MYELOID LEUKAEMIA
     Dosage: 1.64 G QD X 5; IV
     Route: 042
     Dates: start: 20060707, end: 20060711
  3. IDARUBICIN HCL [Suspect]
     Indication: ACUTE MYELOID LEUKAEMIA
     Dosage: 13 MG QD X 3; IV
     Route: 042
     Dates: start: 20060707, end: 20060709
  4. VANCOMYCIN [Concomitant]
  5. ZOSYN [Concomitant]
  6. ACYCLOVIR [Concomitant]
  7. MORPHINE [Concomitant]
  8. NPH INSULIN [Concomitant]
  9. ZOFRAN [Concomitant]
  10. PREDNISOLONE ACETATE [Concomitant]
  11. ATORVASTATIN CALCIUM [Concomitant]
  12. DIPHENHYDRAMINE [Concomitant]
  13. AMPHOTERICIN B [Concomitant]
  14. DILTRAZEM [Concomitant]
  15. NYSTATIN [Concomitant]
  16. ACETAMINOPHEN [Concomitant]
  17. AMIODARONE HCL [Concomitant]
  18. ESOMEPRAZOLE SODIUM [Concomitant]
  19. GLYCOPYRROLATE [Concomitant]
  20. HALOPERIDOL [Concomitant]
  21. IPRATROPIUM BROMIDE [Concomitant]
  22. LEVABUTEROL [Concomitant]
  23. METOPROLOL TARTRATE [Concomitant]
  24. TRYPSIN WITH CASTOR OIL AND PERUVIAN BALSAM [Concomitant]

REACTIONS (5)
  - ARRHYTHMIA SUPRAVENTRICULAR [None]
  - ATRIAL FIBRILLATION [None]
  - CHEST DISCOMFORT [None]
  - DYSPNOEA [None]
  - FEBRILE NEUTROPENIA [None]
